FAERS Safety Report 23347660 (Version 1)
Quarter: 2023Q4

REPORT INFORMATION
  Report Type: Spontaneous
  Country: US (occurrence: None)
  Receive Date: 20231228
  Receipt Date: 20231228
  Transmission Date: 20240109
  Serious: Yes (Other)
  Sender: FDA-Public Use
  Company Number: None

PATIENT
  Age: 44 Year
  Sex: Female
  Weight: 102.3 kg

DRUGS (4)
  1. INJECTAFER [Suspect]
     Active Substance: FERRIC CARBOXYMALTOSE
     Indication: Iron deficiency anaemia
     Dosage: OTHER FREQUENCY : ONCE;?
     Route: 042
     Dates: start: 20231221, end: 20231221
  2. Atenolol 50mg - chlorthalidone 25 mg once daily [Concomitant]
  3. Atorvastatin 20 mg once daily [Concomitant]
  4. Metformin 750 mg once daily [Concomitant]

REACTIONS (5)
  - Pruritus [None]
  - Dyspnoea [None]
  - Chest discomfort [None]
  - Blood pressure increased [None]
  - Infusion related reaction [None]

NARRATIVE: CASE EVENT DATE: 20231221
